FAERS Safety Report 23268275 (Version 6)
Quarter: 2024Q4

REPORT INFORMATION
  Report Type: Spontaneous
  Country: CA (occurrence: CA)
  Receive Date: 20231206
  Receipt Date: 20241206
  Transmission Date: 20250115
  Serious: Yes (Hospitalization, Other)
  Sender: PFIZER
  Company Number: CA-PFIZER INC-202300419202

PATIENT
  Age: 44 Year
  Sex: Female

DRUGS (6)
  1. RUXIENCE [Suspect]
     Active Substance: RITUXIMAB-PVVR
     Indication: Sjogren^s syndrome
     Dosage: 375 MG, EVERY 6 MONTH (PER WEEK FOR 4 CONSECUTIVE WEEKS)
     Route: 042
     Dates: start: 20230831
  2. RUXIENCE [Suspect]
     Active Substance: RITUXIMAB-PVVR
     Indication: Cryoglobulinaemia
     Dosage: 375 MG, EVERY 6 MONTH (PER WEEK FOR 4 CONSECUTIVE WEEKS)
     Route: 042
     Dates: start: 20231006, end: 20231102
  3. RUXIENCE [Suspect]
     Active Substance: RITUXIMAB-PVVR
     Indication: Nervous system disorder
     Dosage: 375 MG, EVERY 6 MONTH (PER WEEK FOR 4 CONSECUTIVE WEEKS)
     Route: 042
     Dates: start: 20231025
  4. RUXIENCE [Suspect]
     Active Substance: RITUXIMAB-PVVR
     Indication: Renal disorder
     Dosage: 375 MG/M2, 4 WEEKS CONSECUTIVE Q 6 MONTHS
     Route: 042
  5. RUXIENCE [Suspect]
     Active Substance: RITUXIMAB-PVVR
     Indication: Neuropathy peripheral
     Dosage: 1 DF, WEEKLY (375MG/M2 ONCE WEEKLY FOR 4 WEEKS)
     Route: 042
     Dates: start: 20241120
  6. RUXIENCE [Suspect]
     Active Substance: RITUXIMAB-PVVR
     Indication: Eye disorder

REACTIONS (5)
  - Renal disorder [Unknown]
  - Viral uveitis [Unknown]
  - Renal failure [Unknown]
  - Drug effective for unapproved indication [Unknown]
  - Off label use [Unknown]

NARRATIVE: CASE EVENT DATE: 20230101
